FAERS Safety Report 14829028 (Version 1)
Quarter: 2018Q2

REPORT INFORMATION
  Report Type: Spontaneous
  Country: US (occurrence: US)
  Receive Date: 20180406
  Receipt Date: 20180406
  Transmission Date: 20180711
  Serious: Yes (Disabling)
  Sender: FDA-Public Use
  Company Number: None

PATIENT
  Age: 53 Year
  Sex: Female
  Weight: 85.5 kg

DRUGS (6)
  1. HEART MEDS [Concomitant]
  2. ZOFRAN [Concomitant]
     Active Substance: ONDANSETRON HYDROCHLORIDE
  3. FLEXERIL [Concomitant]
     Active Substance: CYCLOBENZAPRINE HYDROCHLORIDE
  4. CIPRO [Suspect]
     Active Substance: CIPROFLOXACIN HYDROCHLORIDE
     Indication: URINARY TRACT INFECTION
     Route: 048
  5. BIO FREEZE [Concomitant]
     Active Substance: MENTHOL
  6. TIGER BALM [Concomitant]
     Active Substance: CAMPHOR (SYNTHETIC)\CAPSICUM OLEORESIN\MENTHOL\METHYL SALICYLATE

REACTIONS (8)
  - Tendonitis [None]
  - Plantar fasciitis [None]
  - Tendon disorder [None]
  - Intervertebral disc degeneration [None]
  - Bursitis [None]
  - Menopause [None]
  - Nephrolithiasis [None]
  - Ovarian cyst ruptured [None]

NARRATIVE: CASE EVENT DATE: 20150215
